FAERS Safety Report 24240164 (Version 1)
Quarter: 2024Q3

REPORT INFORMATION
  Report Type: Spontaneous
  Country: CN (occurrence: CN)
  Receive Date: 20240822
  Receipt Date: 20240822
  Transmission Date: 20241016
  Serious: Yes (Other)
  Sender: SANOFI AVENTIS
  Company Number: CN-SA-SAC20240817001192

PATIENT
  Age: 33 Year
  Sex: Female
  Weight: 73 kg

DRUGS (6)
  1. ZOLPIDEM TARTRATE [Suspect]
     Active Substance: ZOLPIDEM TARTRATE
     Indication: Intentional self-injury
     Dosage: 7 DF QD
     Route: 048
     Dates: start: 20240719, end: 20240719
  2. ZOLPIDEM TARTRATE [Suspect]
     Active Substance: ZOLPIDEM TARTRATE
     Indication: Initial insomnia
  3. ZOLPIDEM TARTRATE [Suspect]
     Active Substance: ZOLPIDEM TARTRATE
     Indication: Dysphoria
  4. ESZOPICLONE [Suspect]
     Active Substance: ESZOPICLONE
     Indication: Intentional self-injury
     Dosage: 5 DF, QD
     Route: 048
     Dates: start: 20240719, end: 20240719
  5. ESZOPICLONE [Suspect]
     Active Substance: ESZOPICLONE
     Indication: Initial insomnia
  6. ESZOPICLONE [Suspect]
     Active Substance: ESZOPICLONE
     Indication: Dysphoria

REACTIONS (3)
  - Loss of consciousness [Recovered/Resolved]
  - Illness [Recovered/Resolved]
  - Toxicity to various agents [Recovered/Resolved]

NARRATIVE: CASE EVENT DATE: 20240719
